FAERS Safety Report 7288321-9 (Version None)
Quarter: 2011Q1

REPORT INFORMATION
  Report Type: 
  Country: None (occurrence: None)
  Receive Date: 20110211
  Receipt Date: 20110208
  Transmission Date: 20110831
  Serious: Yes (Other)
  Sender: FDA-Public Use
  Company Number: US-PFIZER INC-2011028692

PATIENT
  Sex: Female
  Weight: 63.492 kg

DRUGS (1)
  1. ADVIL [Suspect]
     Indication: DYSMENORRHOEA
     Dosage: 200 MG, 4X/DAY
     Route: 048
     Dates: start: 20110205

REACTIONS (3)
  - TINNITUS [None]
  - HEADACHE [None]
  - UTERINE HAEMORRHAGE [None]
